FAERS Safety Report 4708941-2 (Version None)
Quarter: 2005Q3

REPORT INFORMATION
  Report Type: 
  Country: None (occurrence: None)
  Receive Date: 20050705
  Receipt Date: 20050613
  Transmission Date: 20060218
  Serious: Yes (Hospitalization)
  Sender: FDA-Public Use
  Company Number: DEU-2004-0000743

PATIENT
  Age: 49 Year
  Sex: Male

DRUGS (1)
  1. MORPHINE SULFATE [Suspect]
     Indication: PAIN
     Dosage: SEE IMAGE
     Route: 039

REACTIONS (5)
  - AGITATION [None]
  - DISORIENTATION [None]
  - FALL [None]
  - INSOMNIA [None]
  - RESTLESSNESS [None]
